FAERS Safety Report 7099178-3 (Version None)
Quarter: 2010Q4

REPORT INFORMATION
  Report Type: 
  Country: None (occurrence: None)
  Receive Date: 20101112
  Receipt Date: 20101102
  Transmission Date: 20110411
  Serious: Yes (Hospitalization)
  Sender: FDA-Public Use
  Company Number: US-JNJFOC-20101101375

PATIENT
  Sex: Male
  Weight: 94.35 kg

DRUGS (5)
  1. INFLIXIMAB, RECOMBINANT [Suspect]
     Indication: CROHN'S DISEASE
     Route: 042
  2. HUMIRA [Suspect]
     Indication: CROHN'S DISEASE
     Route: 058
  3. OMEPRAZOLE [Concomitant]
  4. TUMS [Concomitant]
  5. MAGNESIUM CARBONATE [Concomitant]

REACTIONS (14)
  - COLITIS [None]
  - CROHN'S DISEASE [None]
  - EROSIVE OESOPHAGITIS [None]
  - FUNGAL INFECTION [None]
  - HERNIA [None]
  - ILEAL STENOSIS [None]
  - INCISION SITE ABSCESS [None]
  - INCISION SITE BLISTER [None]
  - INCISION SITE ERYTHEMA [None]
  - INFECTION [None]
  - INTESTINAL OBSTRUCTION [None]
  - JEJUNAL STENOSIS [None]
  - PAIN [None]
  - RED BLOOD CELL SEDIMENTATION RATE INCREASED [None]
